FAERS Safety Report 10234350 (Version 1)
Quarter: 2014Q2

REPORT INFORMATION
  Report Type: Report from Study
  Country: US (occurrence: US)
  Receive Date: 20140612
  Receipt Date: 20140612
  Transmission Date: 20141212
  Serious: Yes (Hospitalization)
  Sender: FDA-Public Use
  Company Number: US-009507513-1406USA004618

PATIENT
  Age: 16 Year
  Sex: Female
  Weight: 72.29 kg

DRUGS (10)
  1. DEXAMETHASONE [Suspect]
     Indication: ANAPLASTIC LARGE CELL LYMPHOMA T- AND NULL-CELL TYPES
     Dosage: PROPHASE (CYCLE= 5 DAYS): 5 MG/M2, 1X/DAY ON DAYS 1-2 AND 5MG/M2 PO BID ON DAYS 3-5,
     Route: 048
     Dates: start: 20140106, end: 20140110
  2. DEXAMETHASONE [Suspect]
     Dosage: CYCLE 1,3 AND 5: 5 MG/M2, 2X/DAY ON DAYS 1-5
     Route: 048
     Dates: start: 20140111
  3. CRIZOTINIB [Suspect]
     Indication: ANAPLASTIC LARGE CELL LYMPHOMA T- AND NULL-CELL TYPES
     Dosage: CYCLE 1,3 AND 5: 165 MG/M2, 2X/DAY ON DAYS 1-21
     Route: 048
     Dates: start: 20140111
  4. HYDROCORTISONE [Suspect]
     Indication: ANAPLASTIC LARGE CELL LYMPHOMA T- AND NULL-CELL TYPES
     Dosage: PROPHASE (CYCLE= 5 DAYS): 7.5 2 MG ON DAY 1 (AGE BASED DOSING)
     Route: 037
     Dates: start: 20140106
  5. CYTARABINE [Suspect]
     Indication: ANAPLASTIC LARGE CELL LYMPHOMA T- AND NULL-CELL TYPES
     Dosage: PROPHASE (CYCLE= 5 DAYS): 15-24 MG ON DAY 1 (AGE BASED DOSING)
     Route: 037
     Dates: start: 20140106
  6. IFOSFAMIDE [Suspect]
     Indication: ANAPLASTIC LARGE CELL LYMPHOMA T- AND NULL-CELL TYPES
     Dosage: CYCLE 1 ,3 AND 5: 800 MG/M2, IV OVER 60 MINUTES ON DAYS 1-5
     Route: 042
     Dates: start: 20140111
  7. METHOTREXATE [Suspect]
     Indication: ANAPLASTIC LARGE CELL LYMPHOMA T- AND NULL-CELL TYPES
     Dosage: PROPHASE (CYCLE= 5 DAYS): 7.5 2 MG ON DAY 1 (AGE BASED DOSING)
     Route: 037
     Dates: start: 20140106, end: 20140106
  8. METHOTREXATE [Suspect]
     Dosage: CYCLE 1,3 AND 5: 300MG/M2, IV OVER 3 HOURS ON DAY1
     Route: 042
     Dates: start: 20140111
  9. CYCLOPHOSPHAMIDE [Concomitant]
     Dosage: UNK
     Dates: start: 20140106, end: 20140107
  10. ZOFRAN [Concomitant]

REACTIONS (2)
  - Convulsion [Recovered/Resolved]
  - Posterior reversible encephalopathy syndrome [Recovering/Resolving]
